FAERS Safety Report 12659952 (Version 2)
Quarter: 2016Q3

REPORT INFORMATION
  Report Type: Spontaneous
  Country: US (occurrence: US)
  Receive Date: 20160817
  Receipt Date: 20160824
  Transmission Date: 20161109
  Serious: No
  Sender: FDA-Public Use
  Company Number: US-SHIRE-US201609692

PATIENT
  Age: 5 Year
  Sex: Male
  Weight: 17.69 kg

DRUGS (6)
  1. ALLEGRA [Concomitant]
     Active Substance: FEXOFENADINE HYDROCHLORIDE
     Indication: SEASONAL ALLERGY
     Dosage: 30 MG, 1X/DAY:QD
     Route: 048
  2. BENADRYL [Concomitant]
     Active Substance: DIPHENHYDRAMINE HYDROCHLORIDE
     Indication: SLEEP DISORDER
     Dosage: 6.25 MG, UNKNOWN
     Route: 048
  3. VYVANSE [Suspect]
     Active Substance: LISDEXAMFETAMINE DIMESYLATE
     Indication: ATTENTION DEFICIT/HYPERACTIVITY DISORDER
     Dosage: 20 MG, 1X/DAY:QD
     Route: 048
     Dates: start: 201601
  4. FLONASE                            /00908302/ [Concomitant]
     Active Substance: MOMETASONE FUROATE
     Indication: SEASONAL ALLERGY
     Dosage: 50 MG, 1X/DAY:QD
     Route: 045
  5. CLONIDINE. [Concomitant]
     Active Substance: CLONIDINE
     Indication: SLEEP DISORDER
     Dosage: 0.1 MG, 1X/DAY:QD
     Route: 048
  6. MULTIVITAMINS [Concomitant]
     Active Substance: VITAMINS
     Indication: SUPPLEMENTATION THERAPY
     Dosage: UNK, 1X/DAY:QD
     Route: 048

REACTIONS (9)
  - Poor quality drug administered [Recovered/Resolved]
  - Emotional distress [Unknown]
  - Drug administered to patient of inappropriate age [Recovered/Resolved]
  - Disturbance in attention [Unknown]
  - Wrong technique in product usage process [Not Recovered/Not Resolved]
  - Aggression [Unknown]
  - Product quality issue [Unknown]
  - Frustration tolerance decreased [Unknown]
  - Anger [Unknown]

NARRATIVE: CASE EVENT DATE: 201601
